FAERS Safety Report 7472668-7 (Version None)
Quarter: 2011Q2

REPORT INFORMATION
  Report Type: 
  Country: None (occurrence: None)
  Receive Date: 20110511
  Receipt Date: 20110427
  Transmission Date: 20111010
  Serious: Yes (Hospitalization, Other)
  Sender: FDA-Public Use
  Company Number: FR-JNJFOC-20110502750

PATIENT
  Sex: Female

DRUGS (11)
  1. ACETAMINOPHEN AND TRAMADOL HCL [Suspect]
     Indication: PAIN
     Route: 048
  2. MIANSERIN [Concomitant]
     Route: 065
  3. VICTAN [Concomitant]
     Route: 065
  4. SINGULAIR [Concomitant]
     Route: 065
  5. TEGRETOL [Interacting]
     Indication: EPILEPSY
     Route: 048
  6. PREVISCAN (FLUINDIONE) [Interacting]
     Indication: SUPERIOR VENA CAVA SYNDROME
     Route: 048
  7. CLARITIN [Concomitant]
  8. URBANYL [Concomitant]
     Route: 065
  9. BECLOMETHASONE W/FENOTEROL [Interacting]
     Indication: ASTHMA
     Route: 055
  10. VOLTAREN [Concomitant]
     Route: 065
  11. DEPAKENE [Concomitant]
     Route: 065

REACTIONS (4)
  - HAEMATURIA [None]
  - GINGIVAL BLEEDING [None]
  - INTERNATIONAL NORMALISED RATIO INCREASED [None]
  - DRUG INTERACTION [None]
